FAERS Safety Report 4362917-6 (Version None)
Quarter: 2004Q2

REPORT INFORMATION
  Report Type: 
  Country: None (occurrence: None)
  Receive Date: 20040517
  Receipt Date: 20040322
  Transmission Date: 20050107
  Serious: No
  Sender: FDA-Public Use
  Company Number: S04-USA-01841-01

PATIENT
  Age: 76 Year
  Sex: Male

DRUGS (6)
  1. NAMENDA [Suspect]
     Indication: DEMENTIA
     Dosage: 5 MG QD PO
     Route: 048
     Dates: start: 20040312, end: 20040318
  2. NAMENDA [Suspect]
     Indication: DEMENTIA
     Dosage: 5 MG BID PO
     Route: 048
     Dates: start: 20040319
  3. REMINYL [Concomitant]
  4. SINEMET [Concomitant]
  5. SEROQUEL [Concomitant]
  6. PROSCAR [Concomitant]

REACTIONS (4)
  - AGITATION [None]
  - DEPERSONALISATION [None]
  - EATING DISORDER [None]
  - HYPERSOMNIA [None]
